FAERS Safety Report 7256565-8 (Version None)
Quarter: 2011Q1

REPORT INFORMATION
  Report Type: 
  Country: None (occurrence: None)
  Receive Date: 20110129
  Receipt Date: 20100708
  Transmission Date: 20110831
  Serious: No
  Sender: FDA-Public Use
  Company Number: US-ABBOTT-10P-163-0656685-00

PATIENT
  Weight: 86.26 kg

DRUGS (2)
  1. HUMIRA [Suspect]
     Indication: RHEUMATOID ARTHRITIS
     Dates: start: 20060101
  2. HYDROCODONE BITARTRATE AND IBUPROFEN [Suspect]
     Indication: PAIN

REACTIONS (3)
  - FEELING ABNORMAL [None]
  - ARTHRALGIA [None]
  - JOINT SWELLING [None]
